FAERS Safety Report 23520871 (Version 2)
Quarter: 2024Q1

REPORT INFORMATION
  Report Type: Report from Study
  Country: US (occurrence: US)
  Receive Date: 20240214
  Receipt Date: 20240323
  Transmission Date: 20240409
  Serious: Yes (Death, Other)
  Sender: FDA-Public Use
  Company Number: US-TAKEDA-2024TUS012914

PATIENT
  Age: 64 Year
  Sex: Male
  Weight: 82.132 kg

DRUGS (1)
  1. FRUQUINTINIB [Suspect]
     Active Substance: FRUQUINTINIB
     Indication: Rectosigmoid cancer
     Dosage: 4 MILLIGRAM
     Route: 048
     Dates: start: 20231219

REACTIONS (3)
  - Death [Fatal]
  - Metastases to spinal cord [Unknown]
  - Blood pressure increased [Unknown]

NARRATIVE: CASE EVENT DATE: 20240301
